FAERS Safety Report 12601445 (Version 1)
Quarter: 2016Q3

REPORT INFORMATION
  Report Type: Spontaneous
  Country: IN (occurrence: IN)
  Receive Date: 20160728
  Receipt Date: 20160728
  Transmission Date: 20161109
  Serious: No
  Sender: FDA-Public Use
  Company Number: IN-LUPIN PHARMACEUTICALS INC.-E2B_00005395

PATIENT
  Age: 65 Year
  Sex: Male

DRUGS (5)
  1. ATORVA 10 [Concomitant]
     Indication: BLOOD CHOLESTEROL INCREASED
     Route: 048
  2. TELMA 80 AM [Concomitant]
     Indication: HYPERTENSION
     Route: 048
  3. DIVAA [Concomitant]
     Indication: LOSS OF CONSCIOUSNESS
     Route: 048
     Dates: start: 20160430
  4. GLISEN MF [Concomitant]
     Indication: DIABETES MELLITUS
     Route: 048
  5. EPILIVE 500 [Suspect]
     Active Substance: LEVETIRACETAM
     Indication: LOSS OF CONSCIOUSNESS
     Route: 048
     Dates: start: 20160430

REACTIONS (2)
  - Dizziness [Not Recovered/Not Resolved]
  - Vertigo [Not Recovered/Not Resolved]

NARRATIVE: CASE EVENT DATE: 20160501
